FAERS Safety Report 12653239 (Version 3)
Quarter: 2016Q3

REPORT INFORMATION
  Report Type: Spontaneous
  Country: BR (occurrence: BR)
  Receive Date: 20160815
  Receipt Date: 20160915
  Transmission Date: 20161109
  Serious: Yes (Other)
  Sender: FDA-Public Use
  Company Number: BR-ELI_LILLY_AND_COMPANY-BR201608003462

PATIENT
  Age: 66 Year
  Sex: Female
  Weight: 55 kg

DRUGS (5)
  1. VITAMIN B12 [Concomitant]
     Active Substance: CYANOCOBALAMIN
     Dosage: UNK UNK, MONTHLY (1/M)
     Route: 065
  2. HUMULIN R [Suspect]
     Active Substance: INSULIN HUMAN
     Indication: DIABETES MELLITUS
     Dosage: 4 IU, EACH MORNING
     Route: 058
     Dates: start: 201605
  3. PURAN [Concomitant]
     Active Substance: LEVOTHYROXINE SODIUM
     Dosage: 125 UG, EACH MORNING
     Route: 065
  4. CREON [Concomitant]
     Active Substance: PANCRELIPASE AMYLASE\PANCRELIPASE LIPASE\PANCRELIPASE PROTEASE
     Dosage: UNK UNK, OTHER
     Route: 065
  5. HUMULIN N [Suspect]
     Active Substance: INSULIN HUMAN
     Indication: DIABETES MELLITUS
     Dosage: 24 IU, EACH MORNING
     Route: 058

REACTIONS (8)
  - Post procedural infection [Unknown]
  - Blood glucose fluctuation [Unknown]
  - Glycosylated haemoglobin increased [Recovered/Resolved]
  - Pancreatic neoplasm [Recovered/Resolved]
  - Blood glucose increased [Unknown]
  - Anxiety [Unknown]
  - Post procedural complication [Unknown]
  - Nervousness [Unknown]

NARRATIVE: CASE EVENT DATE: 20140703
